FAERS Safety Report 9313001 (Version 2)
Quarter: 2013Q3

REPORT INFORMATION
  Report Type: Report from Study
  Country: IT (occurrence: IT)
  Receive Date: 20130528
  Receipt Date: 20130906
  Transmission Date: 20140515
  Serious: Yes (Hospitalization)
  Sender: FDA-Public Use
  Company Number: PHHO2013IT006985

PATIENT
  Sex: 0

DRUGS (4)
  1. AFINITOR [Suspect]
     Indication: BREAST CANCER METASTATIC
     Dosage: 10 MG, BID
     Route: 048
     Dates: start: 20130311, end: 20130419
  2. AFINITOR [Suspect]
     Dosage: 10 MG, UNK
     Route: 048
     Dates: start: 20130424
  3. EXEMESTANE [Suspect]
     Indication: BREAST CANCER METASTATIC
     Dosage: 25 MG, UNK
     Dates: start: 20130312, end: 20130419
  4. EXEMESTANE [Suspect]
     Dosage: 25 MG, UNK
     Dates: start: 20130424

REACTIONS (1)
  - Rectal haemorrhage [Recovered/Resolved]
